FAERS Safety Report 16369772 (Version 1)
Quarter: 2019Q2

REPORT INFORMATION
  Report Type: Report from Study
  Country: KR (occurrence: KR)
  Receive Date: 20190530
  Receipt Date: 20190530
  Transmission Date: 20190711
  Serious: Yes (Hospitalization)
  Sender: FDA-Public Use
  Company Number: KR-TAKEDA-2019TJP011558

PATIENT
  Age: 49 Year
  Sex: Female
  Weight: 72 kg

DRUGS (10)
  1. COUGH SYRUP                        /00872901/ [Concomitant]
     Dosage: 80 MILLILITER
     Route: 048
  2. LEVOTEC                            /00068002/ [Concomitant]
     Dosage: UNK
     Dates: start: 20190411, end: 20190413
  3. KLARICID                           /00984601/ [Concomitant]
     Active Substance: CLARITHROMYCIN
     Dosage: UNK
     Route: 048
     Dates: start: 20190109, end: 20190115
  4. ALBIS [Concomitant]
     Active Substance: BISMUTH SUBCITRATE\RANITIDINE HYDROCHLORIDE\SUCRALFATE
     Dosage: UNK
     Dates: start: 20190109, end: 20190115
  5. ALOGLIPTIN, PIOGLITAZONE [Suspect]
     Active Substance: ALOGLIPTIN BENZOATE\PIOGLITAZONE HYDROCHLORIDE
     Indication: PRODUCT USED FOR UNKNOWN INDICATION
     Dosage: UNK UNK, QD
     Route: 048
     Dates: start: 20190304
  6. ERDOS [Concomitant]
     Active Substance: ERDOSTEINE
     Dosage: UNK
     Dates: start: 20190109, end: 20190115
  7. COSSAC L [Concomitant]
     Dosage: UNK
  8. GLIMEPIRIDE, METFORMIN [Suspect]
     Active Substance: GLIMEPIRIDE\METFORMIN
     Indication: PRODUCT USED FOR UNKNOWN INDICATION
     Dosage: UNK UNK, QD
     Route: 048
     Dates: start: 20181207, end: 20190303
  9. ZYFEN [Concomitant]
     Dosage: UNK
     Route: 048
     Dates: start: 20190411, end: 20190413
  10. TAMOXIFEN [Concomitant]
     Active Substance: TAMOXIFEN
     Dosage: UNK
     Route: 048
     Dates: start: 20190411, end: 20190413

REACTIONS (1)
  - Carpal tunnel syndrome [Recovered/Resolved]
